FAERS Safety Report 14190910 (Version 1)
Quarter: 2017Q4

REPORT INFORMATION
  Report Type: Spontaneous
  Country: US (occurrence: None)
  Receive Date: 20171114
  Receipt Date: 20171114
  Transmission Date: 20180321
  Serious: Yes (Death)
  Sender: FDA-Public Use
  Company Number: None

PATIENT
  Age: 65 Year
  Sex: Female

DRUGS (1)
  1. METHOTREXATE MDV (2ML/VL) 25MG/ML HOSPIRA WORLDWIDE, INC., PFIZER COMPANY [Suspect]
     Active Substance: METHOTREXATE
     Indication: ILL-DEFINED DISORDER
     Route: 058
     Dates: start: 20161116, end: 20171111

REACTIONS (1)
  - Appendicitis [None]

NARRATIVE: CASE EVENT DATE: 20171111
